FAERS Safety Report 9587337 (Version 2)
Quarter: 2013Q4

REPORT INFORMATION
  Report Type: Report from Study
  Country: CO (occurrence: CO)
  Receive Date: 20131003
  Receipt Date: 20131003
  Transmission Date: 20140711
  Serious: Yes (Hospitalization)
  Sender: FDA-Public Use
  Company Number: CO-ABBVIE-13P-036-1133633-00

PATIENT
  Age: 58 Year
  Sex: Male
  Weight: 78 kg

DRUGS (8)
  1. HUMIRA [Suspect]
     Indication: PSORIASIS
     Route: 058
     Dates: start: 20120307
  2. HALOPERIDOL [Suspect]
     Indication: PRODUCT USED FOR UNKNOWN INDICATION
     Dates: start: 2005
  3. HALOPERIDOL [Suspect]
     Dates: start: 201307
  4. CARBAMAZEPINE [Concomitant]
     Indication: CONVULSION
  5. CARBAMAZEPINE [Concomitant]
     Indication: INJURY
  6. METOPROLOL [Concomitant]
     Indication: HYPERTENSION
  7. ENALAPRIL [Concomitant]
     Indication: HYPERTENSION
  8. GEMFIBROZIL [Concomitant]
     Indication: HYPERTRIGLYCERIDAEMIA

REACTIONS (1)
  - Mental disorder [Recovered/Resolved]
